FAERS Safety Report 7162704-X (Version None)
Quarter: 2010Q4

REPORT INFORMATION
  Report Type: 
  Country: None (occurrence: None)
  Receive Date: 20101215
  Receipt Date: 20091209
  Transmission Date: 20110411
  Serious: Yes (Life-Threatening, Hospitalization)
  Sender: FDA-Public Use
  Company Number: PL-PFIZER INC-2009253067

PATIENT
  Age: 54 Year

DRUGS (9)
  1. BLINDED *NO SUBJECT DRUG [Suspect]
     Indication: RENAL CELL CARCINOMA
     Dosage: 50 MG, DAILY SCHEDULE 4/2
     Route: 048
     Dates: start: 20090720
  2. BLINDED *PLACEBO [Suspect]
     Indication: RENAL CELL CARCINOMA
     Dosage: 50 MG, DAILY SCHEDULE 4/2
     Route: 048
     Dates: start: 20090720
  3. SUNITINIB MALATE [Suspect]
     Indication: RENAL CELL CARCINOMA
     Dosage: 50 MG, DAILY SCHEDULE 4/2
     Route: 048
     Dates: start: 20090720
  4. OMEPRAZOLE [Concomitant]
     Indication: DYSPEPSIA
     Dosage: 20 MG, 1X/DAY
     Route: 048
     Dates: start: 20090730
  5. BISOCARD [Concomitant]
     Indication: HYPERTENSION
     Dosage: 5 MG, 2X/DAY
     Route: 048
     Dates: start: 20090505
  6. ENARENAL [Concomitant]
     Indication: HYPERTENSION
     Dosage: 20 MG, 2X/DAY
     Route: 048
     Dates: start: 20090505
  7. DEXAVEN [Concomitant]
     Indication: THROMBOCYTOPENIA
     Dosage: 4 MG, 2X/DAY
     Route: 042
     Dates: start: 20090810, end: 20090813
  8. AMLOZEK [Concomitant]
     Indication: HYPERTENSION
     Dosage: 5 MG, 1X/DAY
     Route: 048
     Dates: start: 20090809, end: 20090812
  9. HYDROCHLOROTHIAZIDE [Concomitant]
     Indication: HYPERTENSION
     Dosage: 12.5 MG, 1X/DAY
     Route: 048
     Dates: start: 20090809

REACTIONS (2)
  - HYPERTENSION [None]
  - THROMBOCYTOPENIA [None]
